FAERS Safety Report 10404692 (Version 1)
Quarter: 2014Q3

REPORT INFORMATION
  Report Type: Spontaneous
  Country: US (occurrence: US)
  Receive Date: 20140824
  Receipt Date: 20140824
  Transmission Date: 20150326
  Serious: No
  Sender: FDA-Public Use
  Company Number: US-009507513-1408USA011567

PATIENT
  Sex: Female

DRUGS (2)
  1. DULCOLAX [Concomitant]
     Active Substance: BISACODYL OR DOCUSATE SODIUM
     Indication: COLONOSCOPY
     Dosage: UNK, UNKNOWN
  2. MIRALAX [Suspect]
     Active Substance: POLYETHYLENE GLYCOL 3350
     Indication: COLONOSCOPY
     Dosage: UNK, UNKNOWN
     Route: 048

REACTIONS (4)
  - Drug prescribing error [Unknown]
  - Adverse event [Unknown]
  - Drug ineffective for unapproved indication [Unknown]
  - Off label use [Unknown]
